FAERS Safety Report 7960188-2 (Version None)
Quarter: 2011Q4

REPORT INFORMATION
  Report Type: 
  Country: None (occurrence: None)
  Receive Date: 20111206
  Receipt Date: 20111202
  Transmission Date: 20120403
  Serious: Yes (Other)
  Sender: FDA-Public Use
  Company Number: PHHY2011BE105611

PATIENT
  Sex: Male

DRUGS (2)
  1. QAB149 [Suspect]
     Dosage: UNK
  2. SPIRIVA [Concomitant]

REACTIONS (1)
  - ARRHYTHMIA [None]
